FAERS Safety Report 21659896 (Version 2)
Quarter: 2022Q4

REPORT INFORMATION
  Report Type: Spontaneous
  Country: JP (occurrence: JP)
  Receive Date: 20221130
  Receipt Date: 20221201
  Transmission Date: 20230112
  Serious: Yes (Hospitalization)
  Sender: FDA-Public Use
  Company Number: JP-TTPharma-2022-JP-003708J

PATIENT
  Age: 94 Year
  Sex: Female
  Weight: 62 kg

DRUGS (3)
  1. PRAVASTATIN SODIUM [Suspect]
     Active Substance: PRAVASTATIN SODIUM
     Indication: Hyperlipidaemia
     Dosage: 5 MILLIGRAM DAILY;
     Route: 048
     Dates: end: 20221003
  2. ELDECALCITOL [Concomitant]
     Active Substance: ELDECALCITOL
     Indication: Product used for unknown indication
     Dosage: .5 MICROGRAM DAILY;
     Route: 048
  3. AMLODIPINE BESYLATE [Concomitant]
     Active Substance: AMLODIPINE BESYLATE
     Indication: Product used for unknown indication
     Dosage: 5 MILLIGRAM DAILY;
     Route: 048

REACTIONS (3)
  - Hypokalaemia [Recovered/Resolved]
  - Rhabdomyolysis [Recovered/Resolved]
  - Pseudoaldosteronism [Unknown]

NARRATIVE: CASE EVENT DATE: 20221003
